FAERS Safety Report 10063818 (Version 2)
Quarter: 2014Q2

REPORT INFORMATION
  Report Type: Spontaneous
  Country: IT (occurrence: IT)
  Receive Date: 20140408
  Receipt Date: 20140412
  Transmission Date: 20141212
  Serious: Yes (Hospitalization)
  Sender: FDA-Public Use
  Company Number: IT-009507513-1404ITA001132

PATIENT
  Age: 66 Year
  Sex: Female
  Weight: 79 kg

DRUGS (1)
  1. TEMOZOLOMIDE [Suspect]
     Dosage: 140 MG TOTAL DAILY DOSE, QD
     Route: 048
     Dates: start: 20131007, end: 20131115

REACTIONS (3)
  - Hyperpyrexia [Recovered/Resolved]
  - Confusional state [Recovered/Resolved]
  - Thrombocytopenia [Recovered/Resolved]
